FAERS Safety Report 16638600 (Version 1)
Quarter: 2019Q3

REPORT INFORMATION
  Report Type: Spontaneous
  Country: US (occurrence: US)
  Receive Date: 20190726
  Receipt Date: 20190726
  Transmission Date: 20191004
  Serious: No
  Sender: FDA-Public Use
  Company Number: US-GENUS_LIFESCIENCES-USA-POI0580201800123

PATIENT
  Sex: Female
  Weight: 77.63 kg

DRUGS (5)
  1. LINZESS [Concomitant]
     Active Substance: LINACLOTIDE
     Indication: GASTROINTESTINAL DISORDER
  2. VASCEPA [Concomitant]
     Active Substance: ICOSAPENT ETHYL
     Indication: HYPERTRIGLYCERIDAEMIA
  3. TRAMADOL. [Concomitant]
     Active Substance: TRAMADOL
     Indication: PAIN
  4. METFORMIN [Concomitant]
     Active Substance: METFORMIN HYDROCHLORIDE
     Indication: BLOOD GLUCOSE INCREASED
  5. LEVOLET (LEVOTHYROXINE SODIUM) [Suspect]
     Active Substance: LEVOTHYROXINE SODIUM
     Indication: THYROID DISORDER
     Dates: start: 2018, end: 201809

REACTIONS (1)
  - Pain [Recovered/Resolved]

NARRATIVE: CASE EVENT DATE: 2018
